FAERS Safety Report 7893557-X (Version None)
Quarter: 2011Q4

REPORT INFORMATION
  Report Type: 
  Country: None (occurrence: None)
  Receive Date: 20111104
  Receipt Date: 20111025
  Transmission Date: 20120403
  Serious: Yes (Hospitalization)
  Sender: FDA-Public Use
  Company Number: CA-JNJFOC-20111100947

PATIENT
  Sex: Male
  Weight: 72.5 kg

DRUGS (2)
  1. REMICADE [Suspect]
     Route: 042
  2. REMICADE [Suspect]
     Indication: CROHN'S DISEASE
     Dosage: 12TH INFUSION
     Route: 042
     Dates: start: 20111025

REACTIONS (1)
  - NEPHROLITHIASIS [None]
